FAERS Safety Report 9064223 (Version 2)
Quarter: 2012Q4

REPORT INFORMATION
  Report Type: 
  Country: US (occurrence: US)
  Receive Date: 20121029
  Receipt Date: 20121029
  Transmission Date: 20130627
  Serious: No
  Sender: FDA-Public Use
  Company Number: US-MYLANLABS-2012S1019695

PATIENT
  Sex: Male

DRUGS (2)
  1. TAMSULOSIN HYDROCHLORIDE [Suspect]
     Indication: DYSURIA
     Route: 048
     Dates: start: 20110810, end: 20120223
  2. TAMSULOSIN HYDROCHLORIDE [Suspect]
     Indication: DYSURIA
     Route: 048
     Dates: start: 20110810, end: 20120223

REACTIONS (2)
  - Sexual dysfunction [Not Recovered/Not Resolved]
  - Erectile dysfunction [Not Recovered/Not Resolved]
